FAERS Safety Report 8849439 (Version 2)
Quarter: 2012Q4

REPORT INFORMATION
  Report Type: 
  Country: US (occurrence: US)
  Receive Date: 20121019
  Receipt Date: 20121221
  Transmission Date: 20130627
  Serious: Yes (Hospitalization, Other)
  Sender: FDA-Public Use
  Company Number: US-PFIZER INC-2012259221

PATIENT
  Sex: Female

DRUGS (1)
  1. EFFEXOR XR [Suspect]
     Dosage: 300 mg, UNK

REACTIONS (6)
  - Incorrect drug dosage form administered [Unknown]
  - Suicidal ideation [Unknown]
  - Depression [Unknown]
  - Anxiety [Unknown]
  - Obesity [Unknown]
  - Stress [Unknown]
